FAERS Safety Report 9076254 (Version 1)
Quarter: 2013Q1

REPORT INFORMATION
  Report Type: Report from Study
  Country: US (occurrence: US)
  Receive Date: 20130129
  Receipt Date: 20130129
  Transmission Date: 20140127
  Serious: No
  Sender: FDA-Public Use
  Company Number: US-ABBOTT-12P-163-0920139-00

PATIENT
  Age: 19 Year
  Sex: Male

DRUGS (2)
  1. HUMIRA 40 MG/ 0.8 ML PRE-FILLED SYRINGE [Suspect]
     Indication: ANKYLOSING SPONDYLITIS
     Dates: start: 20120214, end: 20120327
  2. INDOMETHACIN [Concomitant]
     Indication: PAIN
     Route: 048

REACTIONS (4)
  - Petechiae [Unknown]
  - Rash [Recovering/Resolving]
  - Platelet count decreased [Recovered/Resolved]
  - Autoimmune thrombocytopenia [Recovered/Resolved]
